FAERS Safety Report 11964648 (Version 1)
Quarter: 2016Q1

REPORT INFORMATION
  Report Type: Spontaneous
  Country: US (occurrence: US)
  Receive Date: 20160127
  Receipt Date: 20160127
  Transmission Date: 20160526
  Serious: Yes (Other)
  Sender: FDA-Public Use
  Company Number: US-ASTRAZENECA-2016SE07308

PATIENT
  Age: 3 Month
  Sex: Female
  Weight: 4.3 kg

DRUGS (1)
  1. SYNAGIS [Suspect]
     Active Substance: PALIVIZUMAB
     Indication: TUBEROUS SCLEROSIS
     Dosage: 50 MG/ML, 2 DOSES WITH UNKNOWN FREQUENCY
     Route: 030

REACTIONS (4)
  - Drug prescribing error [Unknown]
  - Muscle spasms [Unknown]
  - Seizure [Unknown]
  - Drug dose omission [Unknown]

NARRATIVE: CASE EVENT DATE: 201512
